FAERS Safety Report 25208090 (Version 1)
Quarter: 2025Q2

REPORT INFORMATION
  Report Type: Spontaneous
  Country: US (occurrence: None)
  Receive Date: 20250416
  Receipt Date: 20250416
  Transmission Date: 20250717
  Serious: Yes (unspecified)
  Sender: FDA-CTU
  Company Number: None

PATIENT
  Age: 79 Year
  Sex: Female
  Weight: 60.75 kg

DRUGS (11)
  1. DULOXETINE [Suspect]
     Active Substance: DULOXETINE
     Indication: Depression
     Dosage: OTHER QUANTITY : 30 CAPSULE(S);?FREQUENCY : DAILY;?
     Route: 048
     Dates: start: 20250312, end: 20250414
  2. OXYGEN [Concomitant]
     Active Substance: OXYGEN
  3. PRIMIDONE [Concomitant]
     Active Substance: PRIMIDONE
  4. DIGOXIN [Concomitant]
     Active Substance: DIGOXIN
  5. TRAMADOL [Concomitant]
     Active Substance: TRAMADOL
  6. PREDNISONE [Concomitant]
     Active Substance: PREDNISONE
  7. ASPIRIN [Concomitant]
     Active Substance: ASPIRIN
  8. AMIODARONE [Concomitant]
     Active Substance: AMIODARONE
  9. IRON [Concomitant]
     Active Substance: IRON
  10. B3 [Concomitant]
  11. B12 [Concomitant]

REACTIONS (7)
  - Nausea [None]
  - Brain fog [None]
  - Crying [None]
  - Depression [None]
  - Suicidal ideation [None]
  - Mental disorder [None]
  - Paradoxical drug reaction [None]

NARRATIVE: CASE EVENT DATE: 20250402
